FAERS Safety Report 23046333 (Version 1)
Quarter: 2023Q4

REPORT INFORMATION
  Report Type: Other
  Country: CA (occurrence: CA)
  Receive Date: 20231009
  Receipt Date: 20231009
  Transmission Date: 20240110
  Serious: Yes (Other)
  Sender: FDA-Public Use
  Company Number: CA-APOTEX-2023AP014453

PATIENT
  Age: 23 Year
  Sex: Female

DRUGS (3)
  1. FAMOTIDINE [Suspect]
     Active Substance: FAMOTIDINE
     Indication: Product used for unknown indication
     Dosage: 20 MILLIGRAM
     Route: 065
  2. MONTELUKAST [Suspect]
     Active Substance: MONTELUKAST SODIUM
     Indication: Product used for unknown indication
     Dosage: 10 MILLIGRAM
     Route: 065
  3. CETIRIZINE [Concomitant]
     Active Substance: CETIRIZINE HYDROCHLORIDE
     Indication: Product used for unknown indication
     Dosage: UNK
     Route: 065

REACTIONS (10)
  - Adrenal insufficiency [Unknown]
  - Postural orthostatic tachycardia syndrome [Unknown]
  - Condition aggravated [Unknown]
  - Erythema [Unknown]
  - Feeling hot [Unknown]
  - Mechanical urticaria [Unknown]
  - Stress [Unknown]
  - Swelling [Unknown]
  - Insomnia [Unknown]
  - Drug ineffective [Unknown]
